FAERS Safety Report 20375801 (Version 1)
Quarter: 2022Q1

REPORT INFORMATION
  Report Type: Spontaneous
  Country: US (occurrence: US)
  Receive Date: 20220125
  Receipt Date: 20220125
  Transmission Date: 20220423
  Serious: Yes (Hospitalization, Other)
  Sender: FDA-Public Use
  Company Number: US-GLAXOSMITHKLINE-USCH2022GSK003256

PATIENT
  Age: 21 Year
  Sex: Female

DRUGS (3)
  1. ADVIL [Interacting]
     Active Substance: IBUPROFEN
     Indication: Headache
     Dosage: AS REQUIRED
  2. BACLOFEN [Interacting]
     Active Substance: BACLOFEN
     Indication: Back pain
     Dosage: 5 MG, TID
  3. BACLOFEN [Interacting]
     Active Substance: BACLOFEN
     Dosage: 10 MG, QD

REACTIONS (12)
  - Drug interaction [Unknown]
  - Lethargy [Recovered/Resolved]
  - Altered state of consciousness [Recovered/Resolved]
  - Dizziness [Recovered/Resolved]
  - Ill-defined disorder [Recovered/Resolved]
  - Vomiting [Recovered/Resolved]
  - Depressed level of consciousness [Recovered/Resolved]
  - Confusional state [Recovered/Resolved]
  - Hypokinesia [Recovered/Resolved]
  - Hallucination [Recovered/Resolved]
  - Encephalopathy [Recovered/Resolved]
  - Toxicity to various agents [Unknown]
